FAERS Safety Report 16473121 (Version 1)
Quarter: 2019Q2

REPORT INFORMATION
  Report Type: Report from Study
  Country: US (occurrence: US)
  Receive Date: 20190625
  Receipt Date: 20190625
  Transmission Date: 20190711
  Serious: Yes (Hospitalization, Other)
  Sender: FDA-Public Use
  Company Number: US-ROCHE-2340386

PATIENT
  Age: 59 Year
  Sex: Male
  Weight: 99.3 kg

DRUGS (2)
  1. BLINDED PIRFENIDONE [Suspect]
     Active Substance: PIRFENIDONE
     Indication: IDIOPATHIC PULMONARY FIBROSIS
     Route: 048
     Dates: start: 20160606
  2. VALGANCICLOVIR. [Suspect]
     Active Substance: VALGANCICLOVIR
     Indication: IDIOPATHIC PULMONARY FIBROSIS
     Route: 048

REACTIONS (2)
  - Ecchymosis [Unknown]
  - Haematoma [Unknown]

NARRATIVE: CASE EVENT DATE: 20180818
